FAERS Safety Report 6372159-0 (Version None)
Quarter: 2009Q3

REPORT INFORMATION
  Report Type: 
  Country: None (occurrence: None)
  Receive Date: 20090917
  Receipt Date: 20090904
  Transmission Date: 20100115
  Serious: Yes (Life-Threatening, Hospitalization, Other)
  Sender: FDA-Public Use
  Company Number: ADR15772009

PATIENT
  Age: 44 Year
  Sex: Female

DRUGS (14)
  1. CITALOPRAM HYDROBROMIDE [Suspect]
     Indication: DEPRESSION
     Dosage: 20 MG, ORAL
     Route: 048
  2. METHYLENE BLUE 560 MG [Concomitant]
  3. ALFENTANIL [Concomitant]
  4. ASPIRIN [Concomitant]
  5. ATENOLOL [Concomitant]
  6. BENDROFLUMETHIAZIDE 2.5 MG [Concomitant]
  7. DEXAMETHASONE 4MG TAB [Concomitant]
  8. FELODIPINE [Concomitant]
  9. ISOSORBIDE MONINITRATE 20 MG [Concomitant]
  10. MORPHINE [Concomitant]
  11. PROPOFOL [Concomitant]
  12. REMIFENTANIL [Concomitant]
  13. ROCURONIUM BROMIDE [Concomitant]
  14. SIMVASTATIN [Concomitant]

REACTIONS (15)
  - AKATHISIA [None]
  - BLOOD CALCIUM INCREASED [None]
  - BLOOD PHOSPHORUS INCREASED [None]
  - C-REACTIVE PROTEIN INCREASED [None]
  - DRUG INTERACTION [None]
  - DRUG TOXICITY [None]
  - EXTENSOR PLANTAR RESPONSE [None]
  - GLASGOW COMA SCALE ABNORMAL [None]
  - HYPERPARATHYROIDISM [None]
  - MYDRIASIS [None]
  - PUPILLARY REFLEX IMPAIRED [None]
  - SEROTONIN SYNDROME [None]
  - SPEECH DISORDER [None]
  - STARING [None]
  - WHITE BLOOD CELL COUNT INCREASED [None]
